FAERS Safety Report 8911133 (Version 1)
Quarter: 2012Q4

REPORT INFORMATION
  Report Type: Report from Study
  Country: CA (occurrence: CA)
  Receive Date: 20121115
  Receipt Date: 20121115
  Transmission Date: 20130627
  Serious: Yes (Other)
  Sender: FDA-Public Use
  Company Number: CA-JNJFOC-20121104882

PATIENT
  Sex: Female
  Weight: 70 kg

DRUGS (6)
  1. REMICADE [Suspect]
     Indication: CROHN^S DISEASE
     Dosage: once every 6-8 weeks
     Route: 042
     Dates: start: 200709
  2. METHOTREXATE [Suspect]
     Indication: PRODUCT USED FOR UNKNOWN INDICATION
     Route: 065
  3. ASACOL [Concomitant]
     Route: 065
  4. PANTOLOC [Concomitant]
     Route: 065
  5. TEMAZEPAM [Concomitant]
     Route: 065
  6. FOLIC ACID [Concomitant]
     Route: 065

REACTIONS (2)
  - Squamous cell carcinoma [Unknown]
  - Herpes zoster [Recovered/Resolved]
